FAERS Safety Report 9861695 (Version 1)
Quarter: 2014Q1

REPORT INFORMATION
  Report Type: Spontaneous
  Country: US (occurrence: None)
  Receive Date: 20140131
  Receipt Date: 20140131
  Transmission Date: 20141002
  Serious: Yes (Other)
  Sender: FDA-Public Use
  Company Number: None

PATIENT
  Age: 55 Year
  Sex: Female
  Weight: 76.66 kg

DRUGS (3)
  1. LAMISIL [Suspect]
     Indication: ONYCHOMYCOSIS
     Dates: start: 20120725, end: 20120825
  2. XANAX [Concomitant]
  3. VITAMINS [Concomitant]

REACTIONS (3)
  - Pruritus [None]
  - Hyperhidrosis [None]
  - Jaundice [None]
